FAERS Safety Report 7334061-7 (Version None)
Quarter: 2011Q1

REPORT INFORMATION
  Report Type: 
  Country: None (occurrence: None)
  Receive Date: 20110307
  Receipt Date: 20110218
  Transmission Date: 20110831
  Serious: Yes (Hospitalization, Other)
  Sender: FDA-Public Use
  Company Number: US-BAYER-201040504NA

PATIENT
  Sex: Female
  Weight: 82.993 kg

DRUGS (1)
  1. YASMIN [Suspect]
     Indication: ORAL CONTRACEPTION
     Dosage: UNK
     Route: 048
     Dates: start: 20030101, end: 20070927

REACTIONS (4)
  - COUGH [None]
  - BACK PAIN [None]
  - PAINFUL RESPIRATION [None]
  - PULMONARY EMBOLISM [None]
